FAERS Safety Report 9188068 (Version 1)
Quarter: 2013Q1

REPORT INFORMATION
  Report Type: Spontaneous
  Country: US (occurrence: US)
  Receive Date: 20130325
  Receipt Date: 20130325
  Transmission Date: 20140127
  Serious: Yes (Other)
  Sender: FDA-Public Use
  Company Number: US-MYLANLABS-2013S1002006

PATIENT
  Age: 69 Year
  Sex: Female

DRUGS (4)
  1. FENTANYL TRANSDERMAL SYSTEM [Suspect]
     Indication: FIBROMYALGIA
     Dosage: CHANGED Q72H
     Route: 062
     Dates: start: 20130125
  2. FENTANYL TRANSDERMAL SYSTEM [Suspect]
     Indication: RHEUMATOID ARTHRITIS
     Dosage: CHANGED Q72H
     Route: 062
     Dates: start: 20130125
  3. FENTANYL TRANSDERMAL SYSTEM [Suspect]
     Indication: MYALGIA
     Dosage: CHANGED Q72H
     Route: 062
     Dates: start: 20130125
  4. VALIUM [Concomitant]

REACTIONS (6)
  - Drug ineffective [Not Recovered/Not Resolved]
  - Myalgia [Not Recovered/Not Resolved]
  - Fibromyalgia [Not Recovered/Not Resolved]
  - Rheumatoid arthritis [Not Recovered/Not Resolved]
  - Application site erythema [Not Recovered/Not Resolved]
  - Application site pruritus [Not Recovered/Not Resolved]
